FAERS Safety Report 4999331-6 (Version None)
Quarter: 2006Q2

REPORT INFORMATION
  Report Type: 
  Country: None (occurrence: None)
  Receive Date: 20060509
  Receipt Date: 20060509
  Transmission Date: 20061013
  Serious: Yes (Hospitalization)
  Sender: FDA-Public Use
  Company Number: None

PATIENT
  Age: 67 Year
  Sex: Male

DRUGS (1)
  1. THALIDOMIDE  50MG [Suspect]
     Indication: MULTIPLE MYELOMA
     Dosage: 200 MG QHS PO
     Route: 048
     Dates: start: 20030423, end: 20040203

REACTIONS (1)
  - NEUROPATHY PERIPHERAL [None]
